FAERS Safety Report 8768038 (Version 2)
Quarter: 2012Q4

REPORT INFORMATION
  Report Type: 
  Country: US (occurrence: US)
  Receive Date: 20120905
  Receipt Date: 20120911
  Transmission Date: 20130627
  Serious: Yes (Death)
  Sender: FDA-Public Use
  Company Number: US-CELGENEUS-163-21880-12090103

PATIENT
  Sex: Female

DRUGS (7)
  1. REVLIMID [Suspect]
     Indication: MULTIPLE MYELOMA
     Dosage: 5 Milligram
     Route: 048
     Dates: start: 20120803, end: 201208
  2. METHADONE [Concomitant]
     Indication: DRUG USE FOR UNKNOWN INDICATION
     Dosage: 10 Milligram
     Route: 065
  3. ACYCLOVIR [Concomitant]
     Indication: DRUG USE FOR UNKNOWN INDICATION
     Dosage: 200 Milligram
     Route: 065
  4. LYRICA [Concomitant]
     Indication: DRUG USE FOR UNKNOWN INDICATION
     Dosage: 100 Milligram
     Route: 065
  5. DEXAMETHASONE [Concomitant]
     Indication: DRUG USE FOR UNKNOWN INDICATION
     Dosage: 4 Milligram
     Route: 065
  6. SYNTHROID [Concomitant]
     Indication: DRUG USE FOR UNKNOWN INDICATION
     Dosage: 112 Microgram
     Route: 065
  7. NUVIGIL [Concomitant]
     Indication: DRUG USE FOR UNKNOWN INDICATION
     Dosage: 150 Milligram
     Route: 065

REACTIONS (1)
  - Death [Fatal]
